FAERS Safety Report 8268571-5 (Version None)
Quarter: 2012Q2

REPORT INFORMATION
  Report Type: 
  Country: None (occurrence: None)
  Receive Date: 20120409
  Receipt Date: 20120405
  Transmission Date: 20120825
  Serious: Yes (Death, Other)
  Sender: FDA-Public Use
  Company Number: FR-ASTRAZENECA-2012SE08905

PATIENT
  Age: 718 Month
  Sex: Female

DRUGS (7)
  1. QUETIAPINE FUMARATE [Suspect]
     Indication: PSYCHOTIC DISORDER
     Route: 048
     Dates: start: 20111216
  2. LEPTICUR [Suspect]
     Route: 048
     Dates: start: 20111226
  3. IBUPROFEN [Suspect]
     Route: 048
     Dates: start: 20120206
  4. LASIX [Suspect]
     Route: 048
  5. LOXAPINE HCL [Concomitant]
     Route: 048
  6. ALDACTONE [Suspect]
     Route: 048
  7. CLONAZEPAM [Suspect]
     Route: 048

REACTIONS (9)
  - NAUSEA [None]
  - DYSPNOEA [None]
  - ABDOMINAL DISTENSION [None]
  - ASTHENIA [None]
  - METRORRHAGIA [None]
  - PALLOR [None]
  - ERYSIPELAS [None]
  - PYREXIA [None]
  - EXTRAPYRAMIDAL DISORDER [None]
